FAERS Safety Report 13544337 (Version 1)
Quarter: 2017Q2

REPORT INFORMATION
  Report Type: Spontaneous
  Country: US (occurrence: US)
  Receive Date: 20170515
  Receipt Date: 20170515
  Transmission Date: 20170830
  Serious: No
  Sender: FDA-Public Use
  Company Number: US-B.I. PHARMACEUTICALS,INC./RIDGEFIELD-2017-BI-026068

PATIENT
  Sex: Female

DRUGS (2)
  1. METFORMIN [Concomitant]
     Active Substance: METFORMIN HYDROCHLORIDE
     Indication: TYPE 2 DIABETES MELLITUS
     Route: 048
  2. JARDIANCE [Suspect]
     Active Substance: EMPAGLIFLOZIN
     Indication: TYPE 2 DIABETES MELLITUS
     Dosage: NR;  FORMULATION: TABLET; ? ADMINISTRATION CORRECT? NR(NOT REPORTED) ?ACTION(S) TAKEN WITH PRODUCT:
     Route: 048
     Dates: start: 201704, end: 201704

REACTIONS (2)
  - Abnormal behaviour [Recovered/Resolved]
  - Anger [Recovered/Resolved]

NARRATIVE: CASE EVENT DATE: 201704
